FAERS Safety Report 4966548-6 (Version None)
Quarter: 2006Q2

REPORT INFORMATION
  Report Type: 
  Country: None (occurrence: None)
  Receive Date: 20060407
  Receipt Date: 20060327
  Transmission Date: 20061013
  Serious: Yes (Other)
  Sender: FDA-Public Use
  Company Number: US-JNJFOC-20060304496

PATIENT
  Age: 47 Year
  Sex: Female

DRUGS (1)
  1. ARESTIN [Suspect]
     Indication: PERIODONTITIS
     Route: 004

REACTIONS (9)
  - ARTHRALGIA [None]
  - DYSGEUSIA [None]
  - HEADACHE [None]
  - LUPUS-LIKE SYNDROME [None]
  - MYALGIA [None]
  - NAUSEA [None]
  - RASH [None]
  - SWELLING [None]
  - TINNITUS [None]
